FAERS Safety Report 15358585 (Version 1)
Quarter: 2018Q3

REPORT INFORMATION
  Report Type: Report from Study
  Country: US (occurrence: US)
  Receive Date: 20180906
  Receipt Date: 20180906
  Transmission Date: 20181010
  Serious: Yes (Hospitalization)
  Sender: FDA-Public Use
  Company Number: US-EISAI MEDICAL RESEARCH-EC-2018-042761

PATIENT
  Age: 81 Year
  Sex: Female

DRUGS (2)
  1. LENVIMA [Suspect]
     Active Substance: LENVATINIB
     Indication: THYROID CANCER
     Route: 048
     Dates: start: 20180706, end: 20180717
  2. LENVIMA [Suspect]
     Active Substance: LENVATINIB
     Route: 048
     Dates: start: 20180804, end: 2018

REACTIONS (9)
  - Gingival pain [Not Recovered/Not Resolved]
  - Haematemesis [Not Recovered/Not Resolved]
  - Injury [Recovered/Resolved]
  - Arthritis [Not Recovered/Not Resolved]
  - Pain [Recovering/Resolving]
  - Stomatitis [Not Recovered/Not Resolved]
  - Blood pressure increased [Recovering/Resolving]
  - Epistaxis [Not Recovered/Not Resolved]
  - Dysphonia [Not Recovered/Not Resolved]

NARRATIVE: CASE EVENT DATE: 2018
